FAERS Safety Report 6326704-1 (Version None)
Quarter: 2009Q3

REPORT INFORMATION
  Report Type: 
  Country: None (occurrence: None)
  Receive Date: 20090825
  Receipt Date: 20090817
  Transmission Date: 20100115
  Serious: Yes (Other)
  Sender: FDA-Public Use
  Company Number: PHHY2009CA33456

PATIENT
  Age: 58 Year
  Sex: Female

DRUGS (2)
  1. ESTRADERM [Suspect]
     Dosage: 25 UNK, UNK
     Route: 062
  2. PROGESTERONE [Concomitant]
     Dosage: 2.5 MG, UNK
     Route: 048

REACTIONS (3)
  - HOT FLUSH [None]
  - PHLEBITIS [None]
  - TACHYCARDIA [None]
